FAERS Safety Report 13327407 (Version 1)
Quarter: 2017Q1

REPORT INFORMATION
  Report Type: Spontaneous
  Country: US (occurrence: US)
  Receive Date: 20170313
  Receipt Date: 20170313
  Transmission Date: 20170428
  Serious: No
  Sender: FDA-Public Use
  Company Number: US-JNJFOC-20161226909

PATIENT
  Age: 14 Year
  Sex: Female

DRUGS (2)
  1. WOMENS ROGAINE UNSCENTED [Suspect]
     Active Substance: MINOXIDIL
     Indication: ALOPECIA
     Dosage: RECOMMENDED DOSAGE, 1XDAILY
     Route: 061
     Dates: start: 20160901
  2. WOMENS ROGAINE UNSCENTED [Suspect]
     Active Substance: MINOXIDIL
     Route: 061

REACTIONS (3)
  - Drug administered to patient of inappropriate age [Unknown]
  - Intentional product misuse [Unknown]
  - Product formulation issue [Unknown]

NARRATIVE: CASE EVENT DATE: 20160901
